FAERS Safety Report 16616343 (Version 1)
Quarter: 2019Q3

REPORT INFORMATION
  Report Type: Spontaneous
  Country: US (occurrence: US)
  Receive Date: 20190723
  Receipt Date: 20190723
  Transmission Date: 20191004
  Serious: Yes (Hospitalization)
  Sender: FDA-Public Use
  Company Number: None

PATIENT
  Age: 72 Year
  Sex: Male
  Weight: 82.1 kg

DRUGS (1)
  1. ERBITUX [Suspect]
     Active Substance: CETUXIMAB
     Indication: METASTATIC LYMPHOMA
     Dosage: ?          OTHER FREQUENCY:WEEKLY;?
     Route: 042
     Dates: start: 20190722

REACTIONS (4)
  - Flushing [None]
  - Chills [None]
  - Head discomfort [None]
  - Infusion related reaction [None]

NARRATIVE: CASE EVENT DATE: 20190722
